FAERS Safety Report 15624935 (Version 1)
Quarter: 2018Q4

REPORT INFORMATION
  Report Type: Spontaneous
  Country: UG (occurrence: UG)
  Receive Date: 20181116
  Receipt Date: 20181116
  Transmission Date: 20190205
  Serious: Yes (Other)
  Sender: FDA-Public Use
  Company Number: UG-CIPLA (EU) LIMITED-2018UG22538

PATIENT

DRUGS (3)
  1. EFAVIRENZ. [Suspect]
     Active Substance: EFAVIRENZ
     Indication: HIV INFECTION
     Dosage: 600 MG, PER DAY, ONE COURSE
     Route: 048
     Dates: start: 20180322
  2. LAMIVUDINE. [Suspect]
     Active Substance: LAMIVUDINE
     Indication: HIV INFECTION
     Dosage: 300 MG, PER DAY, ONE COURSE
     Route: 048
     Dates: start: 20180322
  3. TENOFOVIR [Suspect]
     Active Substance: TENOFOVIR
     Indication: HIV INFECTION
     Dosage: 300 MG, PER DAY, ONE COURSE
     Route: 048
     Dates: start: 20180322

REACTIONS (2)
  - Exposure during pregnancy [Unknown]
  - No adverse event [Unknown]
